FAERS Safety Report 21751880 (Version 2)
Quarter: 2023Q2

REPORT INFORMATION
  Report Type: Spontaneous
  Country: US (occurrence: US)
  Receive Date: 20221220
  Receipt Date: 20230426
  Transmission Date: 20230722
  Serious: No
  Sender: FDA-Public Use
  Company Number: US-LEO Pharma-347473

PATIENT
  Age: 28 Year
  Sex: Female

DRUGS (1)
  1. ADBRY [Suspect]
     Active Substance: TRALOKINUMAB-LDRM
     Indication: Dermatitis atopic
     Dosage: THIRD INJECTION WAS PERFORMED ON 23-NOV-2022 ON LEFT AND RIGHT DISTAL POSTERIOR UPPER ARM.
     Route: 058

REACTIONS (5)
  - Injection site pruritus [Unknown]
  - Injection site pain [Unknown]
  - Injection site induration [Unknown]
  - Injection site erythema [Unknown]
  - Injection site warmth [Unknown]

NARRATIVE: CASE EVENT DATE: 20221123
